FAERS Safety Report 9116398 (Version 1)
Quarter: 2013Q1

REPORT INFORMATION
  Report Type: Spontaneous
  Country: US (occurrence: US)
  Receive Date: 20130225
  Receipt Date: 20130225
  Transmission Date: 20140127
  Serious: No
  Sender: FDA-Public Use
  Company Number: US-ENDO PHARMACEUTICALS INC.-FORT20110102

PATIENT
  Sex: Male

DRUGS (1)
  1. FORTESTA [Suspect]
     Indication: PRODUCT USED FOR UNKNOWN INDICATION
     Route: 061
     Dates: start: 201108, end: 201111

REACTIONS (2)
  - Blood testosterone decreased [Unknown]
  - Drug ineffective [Unknown]
